FAERS Safety Report 18543628 (Version 1)
Quarter: 2020Q4

REPORT INFORMATION
  Report Type: Spontaneous
  Country: CN (occurrence: CN)
  Receive Date: 20201125
  Receipt Date: 20201125
  Transmission Date: 20210114
  Serious: Yes (Hospitalization, Other)
  Sender: FDA-Public Use
  Company Number: CN-LUPIN PHARMACEUTICALS INC.-2020-09243

PATIENT
  Age: 57 Year
  Sex: Male

DRUGS (9)
  1. TACROLIMUS. [Concomitant]
     Active Substance: TACROLIMUS
     Indication: IMMUNOSUPPRESSANT DRUG THERAPY
     Dosage: 1.5 MILLIGRAM, BID
     Route: 048
  2. TACROLIMUS. [Concomitant]
     Active Substance: TACROLIMUS
     Dosage: 1 MILLIGRAM
     Route: 065
  3. MYCOPHENOLATE MOFETIL. [Concomitant]
     Active Substance: MYCOPHENOLATE MOFETIL
     Dosage: 0.375 MILLIGRAM, BID
     Route: 065
  4. BIAPENEM [Concomitant]
     Active Substance: BIAPENEM
     Indication: ANTIBIOTIC THERAPY
     Dosage: 0.6 GRAM, QD
     Route: 065
  5. METHYLPREDNISOLONE. [Suspect]
     Active Substance: METHYLPREDNISOLONE
     Indication: COVID-19
     Dosage: 40 MILLIGRAM, QD
     Route: 065
  6. INTERFERON ALFA-2B RECOMBINANT [Concomitant]
     Active Substance: INTERFERON ALFA-2B
     Indication: COVID-19
     Dosage: 10 MILLION INTERNATIONAL UNIT, QD
     Route: 065
  7. MYCOPHENOLATE MOFETIL. [Concomitant]
     Active Substance: MYCOPHENOLATE MOFETIL
     Indication: IMMUNOSUPPRESSANT DRUG THERAPY
     Dosage: 0.75 MILLIGRAM, BID (RESTARTED WITH SAME DOSE AFTER REDUCTION)
     Route: 065
  8. ARBIDOL [Concomitant]
     Active Substance: UMIFENOVIR
     Indication: COVID-19
     Dosage: 0.6 GRAM, QD
     Route: 065
  9. IMMUNOGLOBULINS NOS [Concomitant]
     Active Substance: IMMUNE GLOBULIN NOS
     Indication: COVID-19
     Dosage: 200 MILLIGRAM/KILOGRAM, QD
     Route: 065

REACTIONS (2)
  - Lymphopenia [Recovered/Resolved]
  - Off label use [Unknown]
